FAERS Safety Report 8917986 (Version 1)
Quarter: 2012Q4

REPORT INFORMATION
  Report Type: 
  Country: US (occurrence: US)
  Receive Date: 20121120
  Receipt Date: 20121120
  Transmission Date: 20130627
  Serious: Yes (Death, Other)
  Sender: FDA-Public Use
  Company Number: US-BAXTER-2012BAX024414

PATIENT
  Sex: Female

DRUGS (4)
  1. CYTOXAN? (CYCLOPHOSPHAMIDE FOR INJECTION, USP) [Suspect]
     Indication: BREAST CANCER
     Route: 065
  2. DOCETAXEL [Suspect]
     Indication: BREAST CANCER
     Route: 065
  3. DOXORUBICIN [Suspect]
     Indication: BREAST CANCER
     Route: 065
  4. PEGFILGRASTIM [Concomitant]
     Indication: PROPHYLAXIS
     Route: 065

REACTIONS (2)
  - Embolism [Fatal]
  - Sepsis [Unknown]
